FAERS Safety Report 8846808 (Version 1)
Quarter: 2012Q4

REPORT INFORMATION
  Report Type: Spontaneous
  Country: US (occurrence: None)
  Receive Date: 20121017
  Receipt Date: 20121017
  Transmission Date: 20130627
  Serious: Yes (Life-Threatening, Other)
  Sender: FDA-Public Use
  Company Number: None

PATIENT
  Age: 69 Year
  Sex: Female
  Weight: 59.88 kg

DRUGS (1)
  1. EVOXAC [Suspect]
     Indication: DRY MOUTH
     Dosage: 1 capsule
     Route: 048
     Dates: start: 20120713, end: 20120730

REACTIONS (4)
  - Dizziness [None]
  - Headache [None]
  - Urinary incontinence [None]
  - Hyperhidrosis [None]
